FAERS Safety Report 13446196 (Version 1)
Quarter: 2017Q2

REPORT INFORMATION
  Report Type: Spontaneous
  Country: JP (occurrence: JP)
  Receive Date: 20170417
  Receipt Date: 20170417
  Transmission Date: 20170830
  Serious: Yes (Other)
  Sender: FDA-Public Use
  Company Number: JP-STRIDES ARCOLAB LIMITED-2017SP006432

PATIENT

DRUGS (4)
  1. VANCOMYCIN [Suspect]
     Active Substance: VANCOMYCIN
     Indication: STAPHYLOCOCCAL INFECTION
  2. LEVOFLOXACIN. [Concomitant]
     Active Substance: LEVOFLOXACIN
     Indication: BACTEROIDES INFECTION
     Dosage: 100 MG/DAY, UNK
     Route: 048
  3. LEVOFLOXACIN. [Concomitant]
     Active Substance: LEVOFLOXACIN
     Indication: STAPHYLOCOCCAL INFECTION
  4. VANCOMYCIN [Suspect]
     Active Substance: VANCOMYCIN
     Indication: BACTEROIDES INFECTION
     Dosage: 0.5 G, THRICE  A WEEK
     Route: 042

REACTIONS (1)
  - C-reactive protein increased [Recovered/Resolved]
